FAERS Safety Report 8270864-2 (Version None)
Quarter: 2012Q2

REPORT INFORMATION
  Report Type: 
  Country: None (occurrence: None)
  Receive Date: 20120410
  Receipt Date: 20120410
  Transmission Date: 20120825
  Serious: Yes (Hospitalization)
  Sender: FDA-Public Use
  Company Number: None

PATIENT
  Age: 59 Year
  Sex: Female
  Weight: 86.182 kg

DRUGS (19)
  1. VANCOMYCIN -PREMIX IN DEXTROSE- [Concomitant]
     Route: 042
  2. OMEPRAZOLE [Concomitant]
     Route: 048
  3. WARFARIN SODIUM [Concomitant]
     Route: 048
  4. POTASSIUM CHLORIDE [Concomitant]
  5. PREDNISONE TAB [Concomitant]
     Route: 048
  6. LENALIDOMIDE [Suspect]
     Indication: B-CELL LYMPHOMA
     Dosage: 15 MG
     Route: 048
     Dates: start: 20111130, end: 20120409
  7. CARVEDILOL [Concomitant]
     Route: 048
  8. DARIFENACIN [Concomitant]
     Route: 048
  9. POTASSIUM CHLORIDE [Concomitant]
     Route: 042
  10. POTASSIUM CHLORIDE [Concomitant]
     Route: 048
  11. OXYCODONE HCL [Concomitant]
     Route: 048
  12. INSULIN GLARGINE [Concomitant]
     Route: 058
  13. MAGNESIUM SULFATE [Concomitant]
     Route: 042
  14. SIMVASTATIN [Concomitant]
     Route: 048
  15. FUROSEMIDE [Concomitant]
     Route: 048
  16. PYRIDOSTIGMINE BROMIDE [Concomitant]
     Route: 048
  17. SERTRALINE HYDROCHLORIDE [Concomitant]
  18. ZOLPIDEM TARTRATE [Concomitant]
     Route: 048
  19. ENOXAPARIN [Concomitant]
     Route: 058

REACTIONS (2)
  - DEVICE RELATED INFECTION [None]
  - STAPHYLOCOCCAL BACTERAEMIA [None]
